FAERS Safety Report 5031130-1 (Version None)
Quarter: 2006Q2

REPORT INFORMATION
  Report Type: 
  Country: None (occurrence: None)
  Receive Date: 20060615
  Receipt Date: 20060531
  Transmission Date: 20061013
  Serious: Yes (Other)
  Sender: FDA-Public Use
  Company Number: PHBS2006SE08149

PATIENT

DRUGS (1)
  1. VISUDYNE [Suspect]

REACTIONS (1)
  - TRANSIENT ISCHAEMIC ATTACK [None]
